FAERS Safety Report 8552881-8 (Version None)
Quarter: 2012Q3

REPORT INFORMATION
  Report Type: 
  Country: None (occurrence: None)
  Receive Date: 20120731
  Receipt Date: 20120727
  Transmission Date: 20120928
  Serious: Yes (Other)
  Sender: FDA-Public Use
  Company Number: PHHY2011CA107907

PATIENT
  Sex: Male

DRUGS (2)
  1. SANDOSTATIN LAR [Suspect]
     Indication: PANCREATITIS CHRONIC
     Dosage: 30 MG, QMO
     Route: 030
     Dates: start: 20111212
  2. SANDOSTATIN [Suspect]
     Indication: PANCREATITIS CHRONIC
     Dosage: 100 UG
     Route: 058
     Dates: start: 20111202

REACTIONS (6)
  - GASTRIC DISORDER [None]
  - HYPERHIDROSIS [None]
  - FLANK PAIN [None]
  - VOMITING [None]
  - ASCITES [None]
  - NAUSEA [None]
